FAERS Safety Report 6860272-0 (Version None)
Quarter: 2010Q3

REPORT INFORMATION
  Report Type: 
  Country: None (occurrence: None)
  Receive Date: 20100720
  Receipt Date: 20100715
  Transmission Date: 20110219
  Serious: Yes (Death, Hospitalization)
  Sender: FDA-Public Use
  Company Number: PHHY2010CA45545

PATIENT
  Sex: Male

DRUGS (6)
  1. CLOZARIL [Suspect]
     Indication: PARKINSONISM
     Dosage: 375 MG, QHS
     Route: 048
     Dates: start: 20090212, end: 20090414
  2. CLOZARIL [Suspect]
     Indication: FRONTOTEMPORAL DEMENTIA
  3. CLOZARIL [Suspect]
     Indication: PSYCHOTIC DISORDER
  4. SINEMET [Concomitant]
     Dosage: 100/25 MG, 1\2 TABLET TID
  5. TRAZODONE HYDROCHLORIDE [Concomitant]
     Dosage: 50 UNK, QHS
  6. SYNTHROID [Concomitant]

REACTIONS (5)
  - CONFUSIONAL STATE [None]
  - DEATH [None]
  - DEMENTIA [None]
  - DISEASE PROGRESSION [None]
  - DRUG TOLERANCE DECREASED [None]
